FAERS Safety Report 9357993 (Version 1)
Quarter: 2013Q2

REPORT INFORMATION
  Report Type: Spontaneous
  Country: TR (occurrence: TR)
  Receive Date: 20130620
  Receipt Date: 20130620
  Transmission Date: 20140414
  Serious: Yes (Other)
  Sender: FDA-Public Use
  Company Number: TR-PFIZER INC-2013180566

PATIENT
  Age: 3 Year
  Sex: Male

DRUGS (1)
  1. METRONIDAZOLE [Suspect]
     Indication: AMOEBIC DYSENTERY
     Dosage: UNK
     Route: 048

REACTIONS (4)
  - Blindness [Recovered/Resolved]
  - Vertigo [Recovered/Resolved]
  - Ataxia [Recovered/Resolved]
  - Headache [Recovered/Resolved]
